FAERS Safety Report 8761259 (Version 1)
Quarter: 2012Q4

REPORT INFORMATION
  Report Type: 
  Country: BR (occurrence: BR)
  Receive Date: 20120830
  Receipt Date: 20120830
  Transmission Date: 20130627
  Serious: Yes (Hospitalization)
  Sender: FDA-Public Use
  Company Number: BR-ASTRAZENECA-2012SE61049

PATIENT
  Age: 67 Year
  Sex: Male
  Weight: 80 kg

DRUGS (8)
  1. ATENOLOL [Suspect]
     Indication: HYPERTENSION
     Route: 048
     Dates: start: 2006
  2. ATACAND [Suspect]
     Indication: HYPERTENSION
     Route: 048
     Dates: start: 2006
  3. GLIFAGE XR [Concomitant]
     Indication: DIABETES MELLITUS
     Route: 048
     Dates: start: 2002
  4. INSULIN [Concomitant]
     Indication: DIABETES MELLITUS
     Route: 058
     Dates: start: 2006
  5. LOTAR [Concomitant]
     Route: 048
     Dates: start: 2005
  6. ASPIRINA PREVENT [Concomitant]
     Route: 048
     Dates: start: 2005
  7. LIPITOR [Concomitant]
     Route: 048
     Dates: start: 2005
  8. MONORCORDIL [Concomitant]
     Route: 048
     Dates: start: 2005

REACTIONS (2)
  - Venous occlusion [Recovered/Resolved]
  - Cardiovascular disorder [None]
